FAERS Safety Report 5196007-X (Version None)
Quarter: 2006Q4

REPORT INFORMATION
  Report Type: 
  Country: None (occurrence: None)
  Receive Date: 20061227
  Receipt Date: 20061227
  Transmission Date: 20070319
  Serious: No
  Sender: FDA-Public Use
  Company Number: None

PATIENT
  Age: 68 Year
  Sex: Male
  Weight: 80.7403 kg

DRUGS (1)
  1. ZITHROMAX [Suspect]
     Indication: PNEUMONIA

REACTIONS (1)
  - ANOSMIA [None]
